FAERS Safety Report 18586867 (Version 2)
Quarter: 2020Q4

REPORT INFORMATION
  Report Type: Spontaneous
  Country: US (occurrence: US)
  Receive Date: 20201207
  Receipt Date: 20201220
  Transmission Date: 20210114
  Serious: Yes (Other)
  Sender: FDA-Public Use
  Company Number: US-LUPIN PHARMACEUTICALS INC.-2020-09532

PATIENT
  Sex: Female

DRUGS (4)
  1. GUANFACINE. [Concomitant]
     Active Substance: GUANFACINE
     Dosage: 1 MILLIGRAM, QOD
     Route: 065
  2. GUANFACINE. [Concomitant]
     Active Substance: GUANFACINE
     Indication: ANXIETY
     Dosage: 1 MILLIGRAM, AS NEEDED
     Route: 065
     Dates: start: 20200401
  3. DESVENLAFAXINE EXTENDED RELEASE TABLET 100MG [Suspect]
     Active Substance: DESVENLAFAXINE SUCCINATE
     Indication: OBSESSIVE-COMPULSIVE DISORDER
     Dosage: UNK
     Route: 048
  4. LAMOTRIGINE. [Concomitant]
     Active Substance: LAMOTRIGINE
     Indication: ANXIETY
     Dosage: 200 MILLIGRAM
     Route: 065

REACTIONS (4)
  - Drug ineffective [Unknown]
  - Influenza like illness [Unknown]
  - Product substitution issue [Unknown]
  - Headache [Unknown]
